FAERS Safety Report 7183454-X (Version None)
Quarter: 2010Q4

REPORT INFORMATION
  Report Type: 
  Country: None (occurrence: None)
  Receive Date: 20101220
  Receipt Date: 20101220
  Transmission Date: 20110411
  Serious: Yes (Other)
  Sender: FDA-Public Use
  Company Number: None

PATIENT
  Sex: Female

DRUGS (1)
  1. TAMSULOSIN HCL [Suspect]
     Dosage: ONE TAB ONE QDAY PO
     Route: 048
     Dates: start: 20100301, end: 20100601

REACTIONS (3)
  - NOCTURIA [None]
  - POLLAKIURIA [None]
  - PRODUCT SUBSTITUTION ISSUE [None]
